FAERS Safety Report 8617357-8 (Version None)
Quarter: 2012Q3

REPORT INFORMATION
  Report Type: 
  Country: None (occurrence: None)
  Receive Date: 20120823
  Receipt Date: 20120816
  Transmission Date: 20120928
  Serious: No
  Sender: FDA-Public Use
  Company Number: US-ASTRAZENECA-2012SE57885

PATIENT
  Age: 64 Year
  Sex: Female
  Weight: 68 kg

DRUGS (17)
  1. SEROQUEL XR [Suspect]
     Dosage: 300 MG, CUT INTO TWO
     Route: 048
  2. SEROQUEL XR [Suspect]
     Route: 048
  3. BUSPAR [Concomitant]
  4. GABAPENTIN [Concomitant]
  5. FLUTICASONE PROPIONATE [Concomitant]
  6. SEROQUEL XR [Suspect]
     Indication: DEPRESSION
     Route: 048
  7. XANAX [Concomitant]
  8. CELEXA [Concomitant]
  9. SEROQUEL XR [Suspect]
     Dosage: 300 MG, CUT INTO TWO
     Route: 048
  10. SEROQUEL XR [Suspect]
     Dosage: 300 MG, CUT INTO TWO
     Route: 048
  11. SEROQUEL XR [Suspect]
     Route: 048
  12. SEROQUEL XR [Suspect]
     Route: 048
  13. FOSAMAX [Concomitant]
  14. SEROQUEL XR [Suspect]
     Indication: SLEEP DISORDER
     Route: 048
  15. SEROQUEL XR [Suspect]
     Indication: BIPOLAR DISORDER
     Route: 048
  16. MELOXICAM [Concomitant]
     Dosage: Q AM
  17. SYNTHROID [Concomitant]

REACTIONS (21)
  - MALAISE [None]
  - WEIGHT INCREASED [None]
  - SWOLLEN TONGUE [None]
  - LETHARGY [None]
  - OFF LABEL USE [None]
  - DRY MOUTH [None]
  - DRUG INEFFECTIVE [None]
  - NASAL CONGESTION [None]
  - ADVERSE EVENT [None]
  - APHAGIA [None]
  - SEASONAL ALLERGY [None]
  - ASTHMA [None]
  - SOMNOLENCE [None]
  - NIGHTMARE [None]
  - DYSPNOEA [None]
  - INSOMNIA [None]
  - DYSPHAGIA [None]
  - ACTIVITIES OF DAILY LIVING IMPAIRED [None]
  - OSTEOPOROSIS [None]
  - ALTERED STATE OF CONSCIOUSNESS [None]
  - DEPRESSION [None]
